FAERS Safety Report 18961666 (Version 3)
Quarter: 2021Q2

REPORT INFORMATION
  Report Type: Report from Study
  Country: CA (occurrence: CA)
  Receive Date: 20210303
  Receipt Date: 20210622
  Transmission Date: 20210717
  Serious: Yes (Other)
  Sender: FDA-Public Use
  Company Number: CA-BAUSCH-BL-2020-010834

PATIENT
  Age: 57 Year
  Sex: Male

DRUGS (3)
  1. ROSUVASTATIN. [Concomitant]
     Active Substance: ROSUVASTATIN
     Indication: PRODUCT USED FOR UNKNOWN INDICATION
     Route: 065
  2. SILIQ [Suspect]
     Active Substance: BRODALUMAB
     Dosage: 210 MG/1.5 ML, EVERY 2 WEEKS
     Route: 058
     Dates: start: 202004, end: 202106
  3. SILIQ [Suspect]
     Active Substance: BRODALUMAB
     Indication: PSORIASIS
     Dosage: 210  MG/1.5 ML AT WEEK 0, 1 AND 2
     Route: 058
     Dates: start: 20200310, end: 202003

REACTIONS (6)
  - Heart rate decreased [Not Recovered/Not Resolved]
  - Localised infection [Unknown]
  - Therapy interrupted [Unknown]
  - Animal scratch [Unknown]
  - Stress [Unknown]
  - Blood pressure increased [Not Recovered/Not Resolved]

NARRATIVE: CASE EVENT DATE: 2020
